FAERS Safety Report 4941430-9 (Version None)
Quarter: 2006Q1

REPORT INFORMATION
  Report Type: 
  Country: None (occurrence: None)
  Receive Date: 20060313
  Receipt Date: 20051110
  Transmission Date: 20060701
  Serious: Yes (Hospitalization)
  Sender: FDA-Public Use
  Company Number: US-MERCK-0511USA01910

PATIENT
  Age: 63 Year
  Sex: Male
  Weight: 67 kg

DRUGS (1)
  1. VIOXX [Suspect]
     Indication: SPONDYLITIS
     Route: 048
     Dates: start: 20010701, end: 20050101

REACTIONS (5)
  - CARDIAC DISORDER [None]
  - CORONARY ARTERY SURGERY [None]
  - PAIN [None]
  - PERONEAL NERVE PALSY [None]
  - THROMBOSIS [None]
